FAERS Safety Report 6905407-6 (Version None)
Quarter: 2010Q3

REPORT INFORMATION
  Report Type: 
  Country: None (occurrence: None)
  Receive Date: 20100804
  Receipt Date: 20100620
  Transmission Date: 20110219
  Serious: No
  Sender: FDA-Public Use
  Company Number: US-BAYER-201018491BCC

PATIENT
  Sex: Male

DRUGS (2)
  1. FINACEA [Suspect]
     Indication: PRODUCT USED FOR UNKNOWN INDICATION
     Dosage: APPLY TO THE NOSE AND TO THE CHEEKS /  BOTTLE COUNT UNKNOWN
     Route: 061
     Dates: start: 20100501
  2. ORACEA [Concomitant]
     Indication: ERYTHEMA
     Route: 065
     Dates: start: 20100301

REACTIONS (3)
  - DRY SKIN [None]
  - ERYTHEMA [None]
  - SKIN BURNING SENSATION [None]
